FAERS Safety Report 5897523 (Version 9)
Quarter: 2012Q4

REPORT INFORMATION
  Report Type: 
  Country: US (occurrence: US)
  Receive Date: 20051003
  Receipt Date: 20121226
  Transmission Date: 20130627
  Serious: Yes (Death, Hospitalization, Other)
  Sender: FDA-Public Use
  Company Number: PHEH2005US10673

PATIENT
  Sex: Female
  Weight: 63.49 kg

DRUGS (19)
  1. ZOMETA [Suspect]
     Indication: METASTASES TO BONE
     Dosage: 4 mg UNK
     Route: 042
     Dates: start: 20020515, end: 20041230
  2. AREDIA [Suspect]
     Indication: METASTASES TO BONE
     Dosage: 90 mg,
     Route: 042
     Dates: start: 20010605, end: 20020411
  3. ARIMIDEX [Concomitant]
     Indication: BREAST CANCER
     Dosage: 1 mg, QD
     Route: 048
     Dates: start: 199806
  4. 5-FU [Concomitant]
     Indication: CHEMOTHERAPY
     Dosage: 650 mg, UNK
     Route: 042
     Dates: start: 20020515, end: 20021101
  5. LEUCOVORIN [Concomitant]
     Indication: CHEMOTHERAPY
     Dosage: 300 mg, UNK
     Route: 042
     Dates: start: 20020515, end: 20021101
  6. XELODA [Concomitant]
     Indication: CHEMOTHERAPY
     Dosage: 200 mg, BID x 2 wks then off 1 wk
     Route: 048
     Dates: start: 20030625, end: 20030822
  7. TAXOTERE [Concomitant]
     Indication: CHEMOTHERAPY
     Dosage: 60 mg, QMO
     Route: 042
     Dates: start: 20020822, end: 20050218
  8. MITOXANTRONE [Concomitant]
     Indication: CHEMOTHERAPY
     Dosage: 22 mg, UNK
     Route: 042
     Dates: start: 20020515, end: 20021101
  9. NEULASTA [Concomitant]
     Indication: ANAEMIA
     Dosage: 6 mg, UNK
     Dates: start: 20021004
  10. LIPITOR /NET/ [Concomitant]
     Indication: HYPERCHOLESTEROLAEMIA
     Route: 048
  11. PREVACID [Concomitant]
     Indication: GASTROOESOPHAGEAL REFLUX DISEASE
     Route: 048
  12. CALCIUM [Concomitant]
  13. NEXIUM [Concomitant]
     Indication: GASTROOESOPHAGEAL REFLUX DISEASE
     Route: 048
  14. VALIUM [Concomitant]
     Route: 048
  15. ZOCOR [Concomitant]
  16. POTASSIUM [Concomitant]
  17. AMBIEN [Concomitant]
  18. VINCRISTINE + ADRIAMYCIN + DEXAMETHASONE [Concomitant]
     Indication: LUNG NEOPLASM MALIGNANT
  19. ZOFRAN [Concomitant]
     Indication: PROPHYLAXIS

REACTIONS (64)
  - Neoplasm progression [Fatal]
  - Malignant neoplasm progression [Fatal]
  - Metastases to liver [Fatal]
  - Metastases to central nervous system [Fatal]
  - Mobility decreased [Fatal]
  - Impaired self-care [Fatal]
  - Cognitive disorder [Fatal]
  - Fatigue [Fatal]
  - Chills [Fatal]
  - Wheezing [Fatal]
  - Respiratory failure [Fatal]
  - Osteonecrosis of jaw [Unknown]
  - Bone fistula [Unknown]
  - Gingival ulceration [Unknown]
  - Impaired healing [Unknown]
  - Gingival pain [Unknown]
  - Spinal column stenosis [Unknown]
  - Back pain [Recovered/Resolved]
  - Intervertebral disc disorder [Unknown]
  - Intervertebral disc degeneration [Unknown]
  - Pulmonary hilum mass [Unknown]
  - Cough [Unknown]
  - Dyspnoea [Unknown]
  - Pleural effusion [Unknown]
  - Aspiration pleural cavity [Unknown]
  - Weight decreased [Unknown]
  - Oedema peripheral [Unknown]
  - Anaemia [Unknown]
  - Optic neuritis [Unknown]
  - Vision blurred [Unknown]
  - Sinusitis [Unknown]
  - Headache [Unknown]
  - Sciatica [Unknown]
  - Bruxism [Unknown]
  - Diarrhoea [Unknown]
  - Thyroid neoplasm [Unknown]
  - Peroneal nerve palsy [Unknown]
  - Neuropathy peripheral [Unknown]
  - Bone disorder [Unknown]
  - Loose tooth [Unknown]
  - Vitreous floaters [Unknown]
  - Migraine [Unknown]
  - Blindness [Unknown]
  - Retinal haemorrhage [Unknown]
  - Arthropathy [Unknown]
  - Periodontal disease [Unknown]
  - Confusional state [Unknown]
  - Disorientation [Unknown]
  - Abdominal distension [Unknown]
  - Electrocardiogram abnormal [Unknown]
  - Hypertension [Unknown]
  - Chronic obstructive pulmonary disease [Unknown]
  - Hypoxia [Unknown]
  - Aphasia [Unknown]
  - Dehydration [Unknown]
  - Hypokalaemia [Unknown]
  - Mental status changes [Unknown]
  - Anxiety [Unknown]
  - Arthralgia [Unknown]
  - Transient ischaemic attack [Unknown]
  - Lymphadenopathy [Unknown]
  - Coronary artery disease [Unknown]
  - Nasal septum deviation [Unknown]
  - Nasal mucosal disorder [Unknown]
